FAERS Safety Report 20979693 (Version 1)
Quarter: 2022Q2

REPORT INFORMATION
  Report Type: Spontaneous
  Country: US (occurrence: US)
  Receive Date: 20220620
  Receipt Date: 20220620
  Transmission Date: 20220720
  Serious: No
  Sender: FDA-Public Use
  Company Number: US-CELGENE-USA-20220200880

PATIENT
  Age: 78 Year
  Sex: Male

DRUGS (3)
  1. REVLIMID [Suspect]
     Active Substance: LENALIDOMIDE
     Indication: Plasma cell myeloma
     Dosage: 25 MILLIGRAM
     Route: 048
     Dates: start: 20211027
  2. REVLIMID [Suspect]
     Active Substance: LENALIDOMIDE
     Dosage: 15 MILLIGRAM
     Route: 048
     Dates: start: 20211027
  3. REVLIMID [Suspect]
     Active Substance: LENALIDOMIDE
     Dosage: TAKE 1 CAPSULE BY MOUTH DAILY ON DAY 1- 21 OF 28 DAY CYCLE.
     Route: 048
     Dates: start: 20211027

REACTIONS (9)
  - Tumour marker decreased [Recovered/Resolved]
  - Abdominal pain upper [Recovered/Resolved]
  - Decreased appetite [Recovered/Resolved]
  - Constipation [Recovered/Resolved]
  - Pain [Unknown]
  - Nausea [Unknown]
  - Depression [Unknown]
  - Adverse drug reaction [Unknown]
  - Asthenia [Unknown]
